FAERS Safety Report 20565363 (Version 2)
Quarter: 2022Q1

REPORT INFORMATION
  Report Type: Spontaneous
  Country: GB (occurrence: GB)
  Receive Date: 20220308
  Receipt Date: 20220319
  Transmission Date: 20220423
  Serious: Yes (Hospitalization, Other)
  Sender: FDA-Public Use
  Company Number: None

PATIENT
  Age: 59 Year
  Sex: Male

DRUGS (8)
  1. DONEPEZIL HYDROCHLORIDE [Interacting]
     Active Substance: DONEPEZIL HYDROCHLORIDE
     Indication: Product used for unknown indication
     Route: 065
  2. LAMOTRIGINE [Interacting]
     Active Substance: LAMOTRIGINE
     Indication: Product used for unknown indication
     Route: 065
     Dates: start: 2017, end: 201808
  3. DEPAKOTE [Interacting]
     Active Substance: DIVALPROEX SODIUM
     Indication: Product used for unknown indication
     Dosage: 2000 MILLIGRAM
     Route: 065
     Dates: start: 201211
  4. HALDOL [Interacting]
     Active Substance: HALOPERIDOL
     Indication: Product used for unknown indication
     Dosage: 500 MG EVERY 17 DAYS
     Route: 065
  5. ASPIRIN [Interacting]
     Active Substance: ASPIRIN
     Indication: Product used for unknown indication
     Dosage: ONCE A DAY
     Route: 065
     Dates: start: 2013
  6. ASENAPINE MALEATE [Interacting]
     Active Substance: ASENAPINE MALEATE
     Indication: Product used for unknown indication
     Dosage: 20 MILLIGRAM
     Route: 065
     Dates: start: 2013
  7. PHENOTHIAZINE [Concomitant]
     Active Substance: PHENOTHIAZINE
     Indication: Product used for unknown indication
     Dosage: UNK
     Route: 065
  8. ASPIRIN [Concomitant]
     Active Substance: ASPIRIN
     Indication: Product used for unknown indication
     Dosage: ONCE A DAY
     Route: 065
     Dates: start: 2013

REACTIONS (23)
  - Vascular dementia [Unknown]
  - Dementia Alzheimer^s type [Unknown]
  - Deafness [Unknown]
  - Cellulitis [Recovered/Resolved]
  - Cerebral atrophy [Unknown]
  - Thermal burns of eye [Recovering/Resolving]
  - Hypotension [Unknown]
  - Drug resistance [Unknown]
  - Oedema [Unknown]
  - Swelling face [Unknown]
  - Weight decreased [Unknown]
  - Drug interaction [Unknown]
  - Eyelid oedema [Recovering/Resolving]
  - Disease recurrence [Unknown]
  - Decreased appetite [Unknown]
  - Conjunctivitis [Unknown]
  - Depressed mood [Unknown]
  - Tinnitus [Unknown]
  - Sedation [Unknown]
  - Depression [Unknown]
  - Somnolence [Unknown]
  - Selective eating disorder [Unknown]
  - Drug effective for unapproved indication [Unknown]

NARRATIVE: CASE EVENT DATE: 20130101
